FAERS Safety Report 25170863 (Version 2)
Quarter: 2025Q2

REPORT INFORMATION
  Report Type: Spontaneous
  Country: US (occurrence: US)
  Receive Date: 20250408
  Receipt Date: 20250523
  Transmission Date: 20250716
  Serious: Yes (Life-Threatening, Other)
  Sender: AUROBINDO
  Company Number: US-MLMSERVICE-20250319-PI450172-00152

PATIENT
  Age: 70 Year
  Sex: Female

DRUGS (1)
  1. FLUOROURACIL [Suspect]
     Active Substance: FLUOROURACIL
     Indication: Rectal cancer stage II
     Route: 065

REACTIONS (2)
  - Arteriospasm coronary [Recovering/Resolving]
  - Chest pain [Unknown]
